FAERS Safety Report 7699078 (Version 9)
Quarter: 2013Q3

REPORT INFORMATION
  Report Type: Spontaneous
  Country: US (occurrence: US)
  Receive Date: 20101208
  Receipt Date: 20130705
  Transmission Date: 20140515
  Serious: Yes (Hospitalization, Other)
  Sender: FDA-Public Use
  Company Number: US-ROCHE-724032

PATIENT
  Age: 35 Year
  Sex: Female
  Weight: 86.2 kg

DRUGS (16)
  1. ACCUTANE [Suspect]
     Indication: ACNE
     Route: 065
  2. ACCUTANE [Suspect]
     Dosage: 20 MG DAILY X 7 DAYS
     Route: 065
     Dates: start: 19910117, end: 19910124
  3. ACCUTANE [Suspect]
     Route: 065
     Dates: start: 19910125, end: 19910222
  4. ACCUTANE [Suspect]
     Route: 065
     Dates: start: 19990223, end: 19990414
  5. ACCUTANE [Suspect]
     Route: 065
     Dates: start: 19990415, end: 19990526
  6. ACCUTANE [Suspect]
     Dosage: 20 MG 4 X PER WEEK AND 40 MG 3 X PER WEEK
     Route: 065
     Dates: start: 19990527, end: 19990731
  7. ACCUTANE [Suspect]
     Route: 065
     Dates: start: 19990805, end: 19991007
  8. ACCUTANE [Suspect]
     Route: 065
     Dates: start: 20021017, end: 20021031
  9. ACCUTANE [Suspect]
     Dosage: INCREASED DOSE
     Route: 065
     Dates: start: 20021108, end: 20021221
  10. ACCUTANE [Suspect]
     Route: 065
  11. REMICADE [Suspect]
     Indication: CROHN^S DISEASE
     Dosage: DOSE OF 8-10 MG/KG
     Route: 042
  12. SYNALAR OINTMENT [Concomitant]
     Indication: PRODUCT USED FOR UNKNOWN INDICATION
     Dosage: TID FOR 4 DAYS
     Route: 065
     Dates: start: 19990604, end: 19990608
  13. SOLAQUIN FORTE CREAM [Concomitant]
     Indication: PRODUCT USED FOR UNKNOWN INDICATION
     Route: 065
  14. ALPRAZOLAM [Concomitant]
     Indication: PRODUCT USED FOR UNKNOWN INDICATION
  15. CIPRO [Concomitant]
     Indication: PRODUCT USED FOR UNKNOWN INDICATION
  16. PCE [Concomitant]
     Indication: PRODUCT USED FOR UNKNOWN INDICATION

REACTIONS (26)
  - Colitis ulcerative [Not Recovered/Not Resolved]
  - Psychotic disorder [Unknown]
  - Inflammatory bowel disease [Unknown]
  - Crohn^s disease [Unknown]
  - Depression [Unknown]
  - Irritable bowel syndrome [Unknown]
  - Intestinal obstruction [Recovered/Resolved]
  - Diarrhoea [Unknown]
  - Defaecation urgency [Unknown]
  - Abdominal pain [Unknown]
  - Nausea [Unknown]
  - Vomiting [Unknown]
  - Pyrexia [Unknown]
  - Weight decreased [Unknown]
  - Sinusitis [Unknown]
  - Upper respiratory tract infection [Unknown]
  - Musculoskeletal stiffness [Unknown]
  - Adjustment disorder with mixed anxiety and depressed mood [Unknown]
  - Dry eye [Unknown]
  - Lip dry [Unknown]
  - Cheilitis [Unknown]
  - Bronchitis [Unknown]
  - Urinary tract infection [Unknown]
  - Oropharyngeal pain [Unknown]
  - Dysphagia [Unknown]
  - Respiratory tract congestion [Unknown]
